FAERS Safety Report 20701563 (Version 1)
Quarter: 2022Q2

REPORT INFORMATION
  Report Type: Spontaneous
  Country: US (occurrence: US)
  Receive Date: 20220412
  Receipt Date: 20220412
  Transmission Date: 20220721
  Serious: No
  Sender: FDA-Public Use
  Company Number: US-TAKEDA-2022TUS024457

PATIENT
  Age: 16 Year
  Sex: Male

DRUGS (2)
  1. ENTYVIO [Suspect]
     Active Substance: VEDOLIZUMAB
     Indication: Crohn^s disease
     Dosage: UNK UNK, Q4WEEKS
     Route: 065
     Dates: start: 202106
  2. ENTYVIO [Suspect]
     Active Substance: VEDOLIZUMAB
     Indication: Gastroenteritis eosinophilic

REACTIONS (3)
  - Loss of therapeutic response [Unknown]
  - Drug level decreased [Unknown]
  - Off label use [Unknown]

NARRATIVE: CASE EVENT DATE: 20210601
